FAERS Safety Report 6296707-4 (Version None)
Quarter: 2009Q3

REPORT INFORMATION
  Report Type: 
  Country: None (occurrence: None)
  Receive Date: 20090716
  Receipt Date: 20090522
  Transmission Date: 20100115
  Serious: Yes (Hospitalization)
  Sender: FDA-Public Use
  Company Number: 2009BI009264

PATIENT
  Age: 51 Year
  Sex: Male

DRUGS (5)
  1. TYSABRI [Suspect]
     Indication: MULTIPLE SCLEROSIS
     Dosage: 3300 MG;QM; IV
     Route: 042
     Dates: start: 20090101
  2. LOPRESSOR (CON.) [Concomitant]
  3. DIOVAN (CON.) [Concomitant]
  4. CLONIDINE (CON.) [Concomitant]
  5. LIPITOR (CON.) [Concomitant]

REACTIONS (3)
  - CHEST PAIN [None]
  - MULTIPLE SCLEROSIS [None]
  - VIRAL UPPER RESPIRATORY TRACT INFECTION [None]
